FAERS Safety Report 8115392-X (Version None)
Quarter: 2012Q1

REPORT INFORMATION
  Report Type: 
  Country: None (occurrence: None)
  Receive Date: 20120206
  Receipt Date: 20120206
  Transmission Date: 20120608
  Serious: Yes (Hospitalization)
  Sender: FDA-Public Use
  Company Number: None

PATIENT
  Age: 30 Year
  Sex: Female
  Weight: 70.306 kg

DRUGS (1)
  1. CYMBALTA [Suspect]
     Indication: DEPRESSION
     Dosage: 60.0 MG
     Route: 048
     Dates: start: 20040101, end: 20120101

REACTIONS (4)
  - URTICARIA [None]
  - RASH [None]
  - PRURITUS [None]
  - SKIN IRRITATION [None]
